FAERS Safety Report 5910773-4 (Version None)
Quarter: 2008Q4

REPORT INFORMATION
  Report Type: 
  Country: None (occurrence: None)
  Receive Date: 20081007
  Receipt Date: 20080428
  Transmission Date: 20090506
  Serious: No
  Sender: FDA-Public Use
  Company Number: US-ASTRAZENECA-2008UW08635

PATIENT
  Age: 41 Year
  Sex: Female
  Weight: 56.7 kg

DRUGS (5)
  1. ARIMIDEX [Suspect]
     Indication: BREAST CANCER
     Route: 048
     Dates: start: 20080301
  2. MULTI-VITAMIN [Concomitant]
  3. CALCIUM [Concomitant]
  4. ASPIRIN [Concomitant]
  5. BISPHOSPHONATE (COLONDRANATE) [Concomitant]

REACTIONS (2)
  - ASTHENIA [None]
  - MUSCLE TWITCHING [None]
